FAERS Safety Report 20076175 (Version 2)
Quarter: 2021Q4

REPORT INFORMATION
  Report Type: Report from Study
  Country: US (occurrence: US)
  Receive Date: 20211116
  Receipt Date: 20211213
  Transmission Date: 20220303
  Serious: Yes (Other)
  Sender: FDA-Public Use
  Company Number: US-PFIZER INC-202101524598

PATIENT
  Age: 52 Year
  Sex: Female

DRUGS (2)
  1. IBRANCE [Suspect]
     Active Substance: PALBOCICLIB
     Indication: Breast cancer
     Dosage: 125 MG DAILY, CYCLIC (21 DAYS AND OFF FOR 7 DAYS)
     Route: 048
     Dates: start: 20210615
  2. LETROZOLE [Concomitant]
     Active Substance: LETROZOLE
     Dosage: UNK

REACTIONS (5)
  - Neuropathy peripheral [Unknown]
  - Fatigue [Recovering/Resolving]
  - Headache [Unknown]
  - Full blood count decreased [Recovering/Resolving]
  - Product dose omission issue [Unknown]
